FAERS Safety Report 9855492 (Version 4)
Quarter: 2014Q1

REPORT INFORMATION
  Report Type: Spontaneous
  Country: CA (occurrence: CA)
  Receive Date: 20140130
  Receipt Date: 20140314
  Transmission Date: 20141002
  Serious: Yes (Other)
  Sender: FDA-Public Use
  Company Number: US-ASTELLAS-2014US000281

PATIENT
  Sex: Male

DRUGS (1)
  1. XTANDI [Suspect]
     Indication: NEOPLASM MALIGNANT
     Dosage: 160 MG, UID/QD
     Route: 048

REACTIONS (11)
  - Drug ineffective [Unknown]
  - Lung disorder [Unknown]
  - Deep vein thrombosis [Unknown]
  - Prostatic specific antigen increased [Unknown]
  - Malignant neoplasm progression [Unknown]
  - Decreased appetite [Unknown]
  - Haemoglobin decreased [Unknown]
  - Dyspnoea exertional [Unknown]
  - Musculoskeletal pain [Unknown]
  - Asthenia [Unknown]
  - Malaise [Unknown]
